FAERS Safety Report 7917413 (Version 2)
Quarter: 2013Q2

REPORT INFORMATION
  Report Type: Report from Study
  Country: CA (occurrence: CA)
  Receive Date: 20110427
  Receipt Date: 20130515
  Transmission Date: 20140414
  Serious: Yes (Other)
  Sender: FDA-Public Use
  Company Number: PHHY2010CA92115

PATIENT
  Sex: Female

DRUGS (4)
  1. ACLASTA [Suspect]
     Indication: OSTEOPOROSIS
     Dosage: UNK
     Route: 042
     Dates: start: 20090626
  2. ACLASTA [Suspect]
     Dosage: UNK
     Route: 042
     Dates: start: 20100625
  3. ACLASTA [Suspect]
     Dosage: UNK
     Route: 042
     Dates: start: 20110620
  4. ACLASTA [Suspect]
     Dosage: UNK
     Route: 042
     Dates: start: 20120709

REACTIONS (4)
  - Hernia [Unknown]
  - Gait disturbance [Unknown]
  - Tooth fracture [Unknown]
  - Bone density abnormal [Unknown]
